FAERS Safety Report 5981674-0 (Version None)
Quarter: 2008Q4

REPORT INFORMATION
  Report Type: 
  Country: None (occurrence: None)
  Receive Date: 20081205
  Receipt Date: 20081124
  Transmission Date: 20090506
  Serious: Yes (Other)
  Sender: FDA-Public Use
  Company Number: FR-ELI_LILLY_AND_COMPANY-FR200809006592

PATIENT
  Age: 37 Year
  Sex: Female
  Weight: 71 kg

DRUGS (2)
  1. CYMBALTA [Suspect]
     Indication: DEPRESSION
     Dosage: 60 MG, DAILY (1/D)
     Route: 048
     Dates: start: 20080519, end: 20081112
  2. PRAZEPAM [Concomitant]
     Indication: ANXIETY
     Dosage: 10 MG, DAILY (1/D)
     Route: 048
     Dates: start: 20080519, end: 20081027

REACTIONS (9)
  - BLOOD PROLACTIN INCREASED [None]
  - BREAST DISCOMFORT [None]
  - DIZZINESS [None]
  - ECCHYMOSIS [None]
  - GINGIVAL BLEEDING [None]
  - HEADACHE [None]
  - HYPERHIDROSIS [None]
  - HYPERTRICHOSIS [None]
  - WEIGHT INCREASED [None]
